FAERS Safety Report 20108069 (Version 1)
Quarter: 2021Q4

REPORT INFORMATION
  Report Type: Spontaneous
  Country: US (occurrence: US)
  Receive Date: 20211124
  Receipt Date: 20211124
  Transmission Date: 20220303
  Serious: No
  Sender: FDA-Public Use
  Company Number: US-KERYX BIOPHARMACEUTICALS INC.-2020US007423

PATIENT
  Age: 52 Year
  Sex: Male

DRUGS (4)
  1. AURYXIA [Suspect]
     Active Substance: TETRAFERRIC TRICITRATE DECAHYDRATE
     Indication: Peritoneal dialysis
     Dosage: 8-12 GRAM (TABLETS), QD (4 TABLETS PER MEAL)
     Route: 048
     Dates: start: 201901
  2. ASPIRIN                            /00002701/ [Concomitant]
     Dosage: UNK
  3. CINACALCET [Concomitant]
     Active Substance: CINACALCET
     Dosage: UNK
  4. RENALVITE [Concomitant]
     Dosage: UNK

REACTIONS (2)
  - Haemoglobin increased [Unknown]
  - Serum ferritin increased [Unknown]

NARRATIVE: CASE EVENT DATE: 20200101
